FAERS Safety Report 10244588 (Version 1)
Quarter: 2014Q2

REPORT INFORMATION
  Report Type: Spontaneous
  Country: DE (occurrence: DE)
  Receive Date: 20140618
  Receipt Date: 20140618
  Transmission Date: 20141212
  Serious: Yes (Hospitalization)
  Sender: FDA-Public Use
  Company Number: DE-WATSON-2014-12757

PATIENT
  Age: 45 Year
  Sex: Female

DRUGS (4)
  1. CITALOPRAM (UNKNOWN) [Suspect]
     Indication: PRODUCT USED FOR UNKNOWN INDICATION
     Dosage: 20 MG, DAILY
     Route: 048
     Dates: start: 20130216, end: 20131017
  2. CITALOPRAM (UNKNOWN) [Suspect]
     Dosage: 10 MG, DAILY
     Route: 048
     Dates: start: 20130113, end: 20130215
  3. VENLAFAXINE (UNKNOWN) [Suspect]
     Indication: PRODUCT USED FOR UNKNOWN INDICATION
     Dosage: 150 MG, DAILY
     Route: 048
     Dates: start: 20130416, end: 20131114
  4. VENLAFAXINE (UNKNOWN) [Suspect]
     Dosage: 75 MG, DAILY
     Route: 048
     Dates: start: 20130320, end: 20130415

REACTIONS (1)
  - Nightmare [Recovered/Resolved]
